FAERS Safety Report 7068163-X (Version None)
Quarter: 2010Q4

REPORT INFORMATION
  Report Type: 
  Country: None (occurrence: None)
  Receive Date: 20101028
  Receipt Date: 20101025
  Transmission Date: 20110411
  Serious: Yes (Death)
  Sender: FDA-Public Use
  Company Number: PHHY2010RU71355

PATIENT
  Sex: Female

DRUGS (2)
  1. TASIGNA [Suspect]
     Indication: CHRONIC MYELOID LEUKAEMIA
     Dosage: 400 MG
  2. TASIGNA [Suspect]
     Dosage: 600 MG DAILY

REACTIONS (2)
  - CHRONIC MYELOID LEUKAEMIA [None]
  - SEPSIS [None]
